FAERS Safety Report 8504262-0 (Version None)
Quarter: 2012Q2

REPORT INFORMATION
  Report Type: 
  Country: None (occurrence: None)
  Receive Date: 20120405
  Receipt Date: 20101026
  Transmission Date: 20120825
  Serious: Yes (Other)
  Sender: FDA-Public Use
  Company Number: PHHY2010US72750

PATIENT
  Sex: Female

DRUGS (1)
  1. RECLAST [Suspect]
     Indication: OSTEOPOROSIS POSTMENOPAUSAL
     Dosage: 5 MG, INTRAVENOUS
     Route: 042
     Dates: start: 20101013

REACTIONS (6)
  - BONE PAIN [None]
  - BEDRIDDEN [None]
  - VOMITING [None]
  - DEHYDRATION [None]
  - NAUSEA [None]
  - PYREXIA [None]
